FAERS Safety Report 5269486-7 (Version None)
Quarter: 2007Q1

REPORT INFORMATION
  Report Type: 
  Country: None (occurrence: None)
  Receive Date: 20070320
  Receipt Date: 20070308
  Transmission Date: 20070707
  Serious: No
  Sender: FDA-Public Use
  Company Number: TW-NOVOPROD-249258

PATIENT
  Age: 17 Year
  Sex: Female
  Weight: 54 kg

DRUGS (9)
  1. NOVORAPID PENFILL [Suspect]
     Indication: DIABETES MELLITUS INSULIN-DEPENDENT
     Dosage: 23 IU, QD
     Dates: start: 20050926, end: 20051005
  2. NOVORAPID PENFILL [Suspect]
     Dosage: 22+20+18
     Dates: end: 20051012
  3. LANTUS [Suspect]
     Indication: DIABETES MELLITUS INSULIN-DEPENDENT
     Dosage: 16 IU, QD
     Dates: start: 20050926, end: 20051005
  4. LANTUS [Suspect]
     Dosage: 26 IU, QD
     Dates: start: 20051005, end: 20051012
  5. NOVOLOG MIX 70/30 [Suspect]
     Indication: DIABETES MELLITUS INSULIN-DEPENDENT
     Dosage: 18+14+14
     Dates: start: 20051012, end: 20051121
  6. BURINEX [Concomitant]
     Dosage: 1 UNK, QD
  7. DICHLOTRIDE [Concomitant]
     Dosage: 50 MG, QD
  8. ACARBOSE [Concomitant]
     Dosage: 2-3
  9. GLUCOPHAGE [Concomitant]
     Dosage: 3

REACTIONS (1)
  - OEDEMA [None]
